FAERS Safety Report 9303191 (Version 3)
Quarter: 2013Q3

REPORT INFORMATION
  Report Type: Spontaneous
  Country: US (occurrence: None)
  Receive Date: 20130517
  Receipt Date: 20130925
  Transmission Date: 20140515
  Serious: Yes (Hospitalization)
  Sender: FDA-Public Use
  Company Number: ACO_36142_2013

PATIENT
  Age: 51 Year
  Sex: Male

DRUGS (8)
  1. AMPYRA [Suspect]
     Indication: MULTIPLE SCLEROSIS
     Route: 048
     Dates: start: 20121128
  2. COPAXONE [Concomitant]
  3. VESICARE [Concomitant]
  4. CITALOPRAM [Concomitant]
  5. BUPROPION [Concomitant]
  6. TIZANIDINE [Concomitant]
  7. VITAMIN B12 [Concomitant]
  8. GABAPENTIN [Concomitant]

REACTIONS (4)
  - Urinary retention [None]
  - Cystitis [None]
  - Urinary tract infection [None]
  - Multiple sclerosis relapse [None]
